FAERS Safety Report 19716560 (Version 2)
Quarter: 2021Q3

REPORT INFORMATION
  Report Type: Spontaneous
  Country: CA (occurrence: CA)
  Receive Date: 20210819
  Receipt Date: 20210825
  Transmission Date: 20211014
  Serious: Yes (Hospitalization)
  Sender: FDA-Public Use
  Company Number: CA-OCTA-NGAM04921CA

PATIENT
  Age: 52 Year
  Sex: Male
  Weight: 79 kg

DRUGS (1)
  1. PANZYGA [Suspect]
     Active Substance: HUMAN IMMUNOGLOBULIN G
     Indication: SECONDARY IMMUNODEFICIENCY
     Route: 042
     Dates: start: 20200625

REACTIONS (3)
  - Circulatory collapse [Unknown]
  - Asthenia [Unknown]
  - Sepsis [Unknown]

NARRATIVE: CASE EVENT DATE: 20200625
